FAERS Safety Report 21119194 (Version 3)
Quarter: 2024Q1

REPORT INFORMATION
  Report Type: Report from Study
  Country: US (occurrence: US)
  Receive Date: 20220722
  Receipt Date: 20240219
  Transmission Date: 20240410
  Serious: Yes (Other)
  Sender: FDA-Public Use
  Company Number: US-ABBVIE-22K-163-4473661-00

PATIENT
  Age: 60 Year
  Sex: Female

DRUGS (5)
  1. HUMIRA [Suspect]
     Active Substance: ADALIMUMAB
     Indication: Rheumatoid arthritis
     Dosage: CITRATE FREE
     Route: 058
  2. HUMIRA [Suspect]
     Active Substance: ADALIMUMAB
     Dosage: CITRATE FREE
     Route: 058
  3. MODERNA COVID-19 VACCINE [Suspect]
     Active Substance: ELASOMERAN
     Indication: COVID-19 immunisation
     Dosage: FIRST DOSE
     Route: 030
     Dates: start: 20210323, end: 20210323
  4. MODERNA COVID-19 VACCINE [Suspect]
     Active Substance: ELASOMERAN
     Indication: COVID-19 immunisation
     Dosage: SECOND DOSE
     Route: 030
     Dates: start: 20210420, end: 20210420
  5. PREDNISONE [Suspect]
     Active Substance: PREDNISONE
     Indication: Product used for unknown indication
     Route: 065

REACTIONS (24)
  - Cervical dysplasia [Unknown]
  - Macular degeneration [Not Recovered/Not Resolved]
  - Spinal osteoarthritis [Recovering/Resolving]
  - Weight decreased [Unknown]
  - Joint swelling [Unknown]
  - Back disorder [Unknown]
  - Infection [Recovering/Resolving]
  - Fatigue [Recovered/Resolved]
  - Treponema test false positive [Unknown]
  - Eye allergy [Recovered/Resolved]
  - Poor peripheral circulation [Not Recovered/Not Resolved]
  - Rash [Recovered/Resolved]
  - Depression [Not Recovered/Not Resolved]
  - Scoliosis [Unknown]
  - Peripheral swelling [Not Recovered/Not Resolved]
  - Musculoskeletal stiffness [Recovering/Resolving]
  - Pain [Recovered/Resolved]
  - Vision blurred [Unknown]
  - Urinary tract infection [Unknown]
  - Fatigue [Recovering/Resolving]
  - Hepatitis C [Recovering/Resolving]
  - Surgery [Recovering/Resolving]
  - Rash vesicular [Recovering/Resolving]
  - Blindness [Unknown]

NARRATIVE: CASE EVENT DATE: 20200801
